FAERS Safety Report 8091118-3 (Version None)
Quarter: 2012Q1

REPORT INFORMATION
  Report Type: 
  Country: None (occurrence: None)
  Receive Date: 20120129
  Receipt Date: 20111021
  Transmission Date: 20120608
  Serious: No
  Sender: FDA-Public Use
  Company Number: US-ABBOTT-11P-163-0867153-00

PATIENT
  Age: 21 Year
  Sex: Female

DRUGS (3)
  1. PREDNISONE TAB [Concomitant]
     Indication: PRODUCT USED FOR UNKNOWN INDICATION
     Dosage: WILL START TO TAPER BY 5 MG EVER OTHER DAY WITH NEXT HUMIRA DOSE ON 17 OCT
  2. HUMIRA [Suspect]
     Indication: COLITIS ULCERATIVE
     Dosage: EVERY OTHER DOSE
     Dates: start: 20110919
  3. LIALDA [Concomitant]
     Indication: COLITIS ULCERATIVE

REACTIONS (1)
  - COLITIS ULCERATIVE [None]
